FAERS Safety Report 14973440 (Version 1)
Quarter: 2018Q2

REPORT INFORMATION
  Report Type: Spontaneous
  Country: US (occurrence: US)
  Receive Date: 20180514
  Receipt Date: 20180514
  Transmission Date: 20180711
  Serious: No
  Sender: FDA-Public Use
  Company Number: None

PATIENT
  Age: 46 Year
  Sex: Female

DRUGS (1)
  1. HUMIRA [Suspect]
     Active Substance: ADALIMUMAB
     Indication: PSEUDOFOLLICULITIS BARBAE
     Route: 058
     Dates: start: 20171207

REACTIONS (4)
  - Stomatitis [None]
  - Gingival discomfort [None]
  - Gingival disorder [None]
  - Tongue discomfort [None]

NARRATIVE: CASE EVENT DATE: 20180501
